FAERS Safety Report 16445224 (Version 2)
Quarter: 2019Q3

REPORT INFORMATION
  Report Type: Spontaneous
  Country: US (occurrence: US)
  Receive Date: 20190618
  Receipt Date: 20190725
  Transmission Date: 20191004
  Serious: Yes (Other)
  Sender: FDA-Public Use
  Company Number: US-KALA PHARAMACEUTICALS-2019KLA00019

PATIENT
  Age: 83 Year
  Sex: Female
  Weight: 53.97 kg

DRUGS (4)
  1. BROMSITE [Suspect]
     Active Substance: BROMFENAC SODIUM
     Dosage: UNK
     Dates: end: 20190521
  2. BESIVANCE [Suspect]
     Active Substance: BESIFLOXACIN
     Dosage: UNK
     Dates: end: 20190521
  3. INVELTYS [Suspect]
     Active Substance: LOTEPREDNOL ETABONATE
     Indication: CATARACT OPERATION
     Dosage: 1 GTT, 2X/DAY
     Dates: start: 20190510, end: 20190516
  4. INVELTYS [Suspect]
     Active Substance: LOTEPREDNOL ETABONATE
     Dosage: 1 GTT, 1X/DAY
     Dates: start: 20190517, end: 20190521

REACTIONS (4)
  - Corneal irritation [Unknown]
  - Punctate keratitis [Recovering/Resolving]
  - Application site pain [Recovered/Resolved]
  - Inappropriate schedule of product administration [Recovered/Resolved]

NARRATIVE: CASE EVENT DATE: 20190514
